FAERS Safety Report 9181840 (Version 1)
Quarter: 2013Q1

REPORT INFORMATION
  Report Type: Spontaneous
  Country: US (occurrence: None)
  Receive Date: 20130321
  Receipt Date: 20130321
  Transmission Date: 20140127
  Serious: Yes (Hospitalization)
  Sender: FDA-Public Use
  Company Number: None

PATIENT
  Age: 59 Year
  Sex: Male

DRUGS (3)
  1. PEMETREXED [Suspect]
     Indication: LUNG NEOPLASM MALIGNANT
     Dosage: IV DRIP
     Route: 042
     Dates: start: 20130128
  2. CISPLATIN IV  DRIP [Concomitant]
  3. PANOBINOSTAT CAPS [Concomitant]

REACTIONS (6)
  - Oedema peripheral [None]
  - Erythema [None]
  - Cellulitis [None]
  - Erysipelas [None]
  - Deep vein thrombosis [None]
  - Venous insufficiency [None]
